FAERS Safety Report 9807472 (Version 1)
Quarter: 2014Q1

REPORT INFORMATION
  Report Type: Spontaneous
  Country: US (occurrence: US)
  Receive Date: 20140110
  Receipt Date: 20140110
  Transmission Date: 20141002
  Serious: No
  Sender: FDA-Public Use
  Company Number: US-SANOFI-AVENTIS-2013SA075917

PATIENT
  Age: 86 Year
  Sex: Male

DRUGS (7)
  1. PLAVIX [Suspect]
     Indication: MYOCARDIAL INFARCTION
     Dosage: TAKEN FROM: 7 YEARS
     Route: 065
  2. PLAVIX [Suspect]
     Indication: MYOCARDIAL INFARCTION
     Route: 065
  3. ELIQUIS [Suspect]
     Dosage: TAKEN FROM: 19TH APRIL
     Route: 065
  4. ELIQUIS [Suspect]
     Dosage: TAKEN FROM: MAY 10TH?END DATE: JULY 1ST
     Route: 065
  5. ASPIRIN [Concomitant]
     Route: 065
  6. CRESTOR [Concomitant]
  7. ATENOLOL [Concomitant]

REACTIONS (3)
  - Hot flush [Not Recovered/Not Resolved]
  - Contusion [Not Recovered/Not Resolved]
  - Dizziness [Not Recovered/Not Resolved]
